FAERS Safety Report 7816979-1 (Version None)
Quarter: 2011Q4

REPORT INFORMATION
  Report Type: 
  Country: None (occurrence: None)
  Receive Date: 20111017
  Receipt Date: 20111012
  Transmission Date: 20120403
  Serious: Yes (Hospitalization)
  Sender: FDA-Public Use
  Company Number: FR-BRISTOL-MYERS SQUIBB COMPANY-16157570

PATIENT
  Age: 31 Year
  Sex: Male

DRUGS (5)
  1. EMEND [Suspect]
     Indication: VOMITING
     Route: 048
  2. CARMUSTINE [Suspect]
     Indication: MEDULLOBLASTOMA
     Route: 042
     Dates: start: 20111004
  3. ZOFRAN [Suspect]
     Indication: VOMITING
     Dates: start: 20111004
  4. PLITICAN [Suspect]
     Indication: VOMITING
     Route: 042
  5. ONCOVIN [Suspect]
     Indication: MEDULLOBLASTOMA
     Dates: start: 20111004

REACTIONS (2)
  - DYSAESTHESIA [None]
  - TONGUE OEDEMA [None]
